FAERS Safety Report 9594368 (Version 1)
Quarter: 2013Q3

REPORT INFORMATION
  Report Type: Spontaneous
  Country: US (occurrence: None)
  Receive Date: 20130927
  Receipt Date: 20130927
  Transmission Date: 20140515
  Serious: Yes (Other)
  Sender: FDA-Public Use
  Company Number: CABO-13003087

PATIENT
  Age: 73 Year
  Sex: Male

DRUGS (5)
  1. COMETRIQ [Suspect]
     Indication: THYROID CANCER
     Route: 048
     Dates: start: 20130708, end: 201307
  2. ATENOLOL (ATENOLOL) [Concomitant]
  3. LISINOPRIL (LISINOPRIL) [Concomitant]
  4. VITAMIN E (TOCOPHEROL) [Concomitant]
  5. WARFARIN (WARFARIN) [Concomitant]

REACTIONS (7)
  - Chemical burn of skin [None]
  - Speech disorder [None]
  - Oropharyngeal pain [None]
  - Diarrhoea [None]
  - Rash [None]
  - Dysphagia [None]
  - Palmar-plantar erythrodysaesthesia syndrome [None]
